FAERS Safety Report 15134506 (Version 1)
Quarter: 2018Q3

REPORT INFORMATION
  Report Type: Spontaneous
  Country: US (occurrence: US)
  Receive Date: 20180712
  Receipt Date: 20180712
  Transmission Date: 20181010
  Serious: No
  Sender: FDA-Public Use
  Company Number: US-GLAXOSMITHKLINE-US2018118103

PATIENT
  Sex: Female

DRUGS (1)
  1. NICODERM CQ [Suspect]
     Active Substance: NICOTINE
     Indication: PRODUCT USED FOR UNKNOWN INDICATION
     Dosage: 21 MG, UNK
     Dates: start: 20180630, end: 20180630

REACTIONS (5)
  - Nightmare [Unknown]
  - Pain in extremity [Unknown]
  - Dyspnoea [Unknown]
  - Panic attack [Unknown]
  - Chest pain [Unknown]

NARRATIVE: CASE EVENT DATE: 20180630
